FAERS Safety Report 9503023 (Version 1)
Quarter: 2013Q1

REPORT INFORMATION
  Report Type: Spontaneous
  Country: US (occurrence: None)
  Receive Date: 20130225
  Receipt Date: 20130225
  Transmission Date: 20140127
  Serious: No
  Sender: FDA-Public Use
  Company Number: 368573

PATIENT
  Age: 70 Year
  Sex: Female

DRUGS (7)
  1. VICTOZA [Suspect]
     Indication: TYPE 2 DIABETES MELLITUS
     Route: 058
     Dates: start: 20120409, end: 20121212
  2. METFORMIN [Concomitant]
  3. LANTUS (INSULINE GLARGINE) [Concomitant]
  4. AMLODIPINE [Concomitant]
  5. METOPROLOL [Concomitant]
  6. LIPITOR (ATORVASTATIN CALCIUM) [Concomitant]
  7. RECLAST (ZOLEDRONIC ACID) [Concomitant]

REACTIONS (1)
  - Pancreatitis [None]
